FAERS Safety Report 6728216-X (Version None)
Quarter: 2010Q2

REPORT INFORMATION
  Report Type: 
  Country: None (occurrence: None)
  Receive Date: 20100517
  Receipt Date: 20100505
  Transmission Date: 20101027
  Serious: Yes (Hospitalization)
  Sender: FDA-Public Use
  Company Number: US-JNJFOC-20100406213

PATIENT
  Age: 64 Year
  Sex: Female
  Weight: 112.49 kg

DRUGS (8)
  1. EXTRA STRENGTH TYLENOL [Suspect]
     Route: 048
  2. EXTRA STRENGTH TYLENOL [Suspect]
     Indication: PAIN
     Route: 048
  3. DIVALPROEX SODIUM [Concomitant]
     Indication: MANIA
  4. LORAZEPAM [Concomitant]
     Indication: ANXIETY
  5. FUROSEMIDE [Concomitant]
     Indication: DIURETIC THERAPY
  6. ACETAZOLAMIDE [Concomitant]
  7. ZOLPIDEM [Concomitant]
     Indication: SLEEP DISORDER
  8. METOPROLOL TARTRATE [Concomitant]
     Indication: HYPERTENSION

REACTIONS (9)
  - DIARRHOEA [None]
  - DYSURIA [None]
  - HEPATOMEGALY [None]
  - INCORRECT DOSE ADMINISTERED [None]
  - MUSCLE SPASMS [None]
  - PRODUCT QUALITY ISSUE [None]
  - RENAL INJURY [None]
  - SWELLING [None]
  - VOMITING PROJECTILE [None]
